FAERS Safety Report 5685769-0 (Version None)
Quarter: 2008Q1

REPORT INFORMATION
  Report Type: 
  Country: None (occurrence: None)
  Receive Date: 20080328
  Receipt Date: 20070917
  Transmission Date: 20080703
  Serious: No
  Sender: FDA-Public Use
  Company Number: US-BAYER-US-2007-035131

PATIENT
  Age: 44 Year
  Sex: Female
  Weight: 159 kg

DRUGS (5)
  1. MIRENA [Suspect]
     Indication: CONTRACEPTION
     Route: 015
     Dates: start: 20070619
  2. XANAX [Concomitant]
     Indication: STRESS
     Dosage: UNIT DOSE: 1 MG
  3. HYDROCODONE BITARTRATE [Concomitant]
     Indication: HEPATITIS B
     Dosage: UNIT DOSE: 5 MG
  4. LISINOPRIL [Concomitant]
     Indication: HYPERTENSION
  5. VITAMINS [Concomitant]

REACTIONS (1)
  - METRORRHAGIA [None]
